FAERS Safety Report 13426580 (Version 3)
Quarter: 2017Q3

REPORT INFORMATION
  Report Type: Spontaneous
  Country: GB (occurrence: GB)
  Receive Date: 20170411
  Receipt Date: 20170726
  Transmission Date: 20171127
  Serious: Yes (Other)
  Sender: FDA-Public Use
  Company Number: GB-CONCORDIA PHARMACEUTICALS INC.-GSH201704-002193

PATIENT
  Age: 59 Year
  Sex: Female

DRUGS (4)
  1. DEXIMUNE [Suspect]
     Active Substance: CYCLOSPORINE
  2. MYFENAX [Suspect]
     Active Substance: MYCOPHENOLATE MOFETIL
  3. DEXIMUNE [Suspect]
     Active Substance: CYCLOSPORINE
  4. PREDNISOLONE TABLET [Suspect]
     Active Substance: PREDNISOLONE

REACTIONS (1)
  - Renal failure [Unknown]
